FAERS Safety Report 14368199 (Version 1)
Quarter: 2018Q1

REPORT INFORMATION
  Report Type: Spontaneous
  Country: US (occurrence: US)
  Receive Date: 20180109
  Receipt Date: 20180109
  Transmission Date: 20180509
  Serious: No
  Sender: FDA-Public Use
  Company Number: US-PFIZER INC-2018009343

PATIENT
  Age: 62 Year
  Sex: Male
  Weight: 90.72 kg

DRUGS (1)
  1. NICOTROL [Suspect]
     Active Substance: NICOTINE
     Indication: SMOKING CESSATION THERAPY
     Dosage: EVERY HOUR
     Dates: start: 20180103

REACTIONS (1)
  - Burning sensation [Unknown]
